FAERS Safety Report 14509980 (Version 2)
Quarter: 2019Q1

REPORT INFORMATION
  Report Type: Spontaneous
  Country: RO (occurrence: RO)
  Receive Date: 20180209
  Receipt Date: 20190130
  Transmission Date: 20190417
  Serious: Yes (Hospitalization, Congenital Anomaly)
  Sender: FDA-Public Use
  Company Number: RO-CIPLA LTD.-2018RO04228

PATIENT

DRUGS (3)
  1. ABACAVIR/LAMIVUDINE [Suspect]
     Active Substance: ABACAVIR\LAMIVUDINE
     Dosage: UNK
     Route: 064
  2. RALTEGRAVIR. [Suspect]
     Active Substance: RALTEGRAVIR
     Dosage: UNK
     Route: 064
  3. INSULIN [Suspect]
     Active Substance: INSULIN NOS
     Dosage: UNK
     Route: 064

REACTIONS (13)
  - Neonatal hypoxia [Unknown]
  - Cerebral calcification [Unknown]
  - Infantile apnoea [Unknown]
  - Hypotonia neonatal [Unknown]
  - Pulmonary artery stenosis congenital [Unknown]
  - Lenticulostriatal vasculopathy [Unknown]
  - Patent ductus arteriosus [Unknown]
  - Microcephaly [Unknown]
  - Neonatal respiratory distress [Unknown]
  - Congenital urethral anomaly [Unknown]
  - Hypoglycaemia neonatal [Unknown]
  - Atrial septal defect [Unknown]
  - Foetal exposure during pregnancy [Unknown]
